FAERS Safety Report 10956449 (Version 1)
Quarter: 2015Q1

REPORT INFORMATION
  Report Type: Spontaneous
  Country: US (occurrence: US)
  Receive Date: 20150326
  Receipt Date: 20150326
  Transmission Date: 20150721
  Serious: Yes (Death)
  Sender: FDA-Public Use
  Company Number: US-CIPLA LTD.-2015US02364

PATIENT

DRUGS (4)
  1. TAPENTADOL [Suspect]
     Active Substance: TAPENTADOL
  2. CARVEDILOL. [Suspect]
     Active Substance: CARVEDILOL
  3. NALOXONE [Suspect]
     Active Substance: NALOXONE
  4. LISINOPRIL. [Suspect]
     Active Substance: LISINOPRIL

REACTIONS (1)
  - Death [Fatal]
